FAERS Safety Report 22187930 (Version 1)
Quarter: 2023Q2

REPORT INFORMATION
  Report Type: Other
  Country: US (occurrence: US)
  Receive Date: 20230408
  Receipt Date: 20230408
  Transmission Date: 20230721
  Serious: Yes (Death)
  Sender: FDA-Public Use
  Company Number: US-ALVOGEN-2023089930

PATIENT
  Age: 42 Year
  Sex: Male

DRUGS (6)
  1. LISINOPRIL [Suspect]
     Active Substance: LISINOPRIL
     Indication: Suicide attempt
  2. ACETAMINOPHEN [Suspect]
     Active Substance: ACETAMINOPHEN
     Indication: Suicide attempt
  3. ACETAMINOPHEN [Suspect]
     Active Substance: ACETAMINOPHEN
     Indication: Suicide attempt
  4. INSULIN GLARGINE [Suspect]
     Active Substance: INSULIN GLARGINE
     Indication: Suicide attempt
  5. ALCOHOL [Suspect]
     Active Substance: ALCOHOL
     Indication: Suicide attempt
  6. LIRAGLUTIDE [Suspect]
     Active Substance: LIRAGLUTIDE
     Indication: Suicide attempt

REACTIONS (1)
  - Completed suicide [Fatal]
